FAERS Safety Report 6962143-8 (Version None)
Quarter: 2010Q3

REPORT INFORMATION
  Report Type: 
  Country: None (occurrence: None)
  Receive Date: 20100902
  Receipt Date: 20100819
  Transmission Date: 20110219
  Serious: Yes (Hospitalization)
  Sender: FDA-Public Use
  Company Number: PHHY2010MX22594

PATIENT
  Age: 66 Year
  Sex: Female

DRUGS (1)
  1. DIOVAN HCT [Suspect]
     Indication: HYPERTENSION
     Dosage: 1 TABLET (160/25 MG ) PER DAY
     Route: 048
     Dates: start: 20061120

REACTIONS (3)
  - HYSTERECTOMY [None]
  - OOPHORECTOMY [None]
  - OVARIAN CANCER [None]
